FAERS Safety Report 15384651 (Version 3)
Quarter: 2018Q4

REPORT INFORMATION
  Report Type: Spontaneous
  Country: GR (occurrence: GR)
  Receive Date: 20180914
  Receipt Date: 20181001
  Transmission Date: 20190204
  Serious: Yes (Other)
  Sender: FDA-Public Use
  Company Number: GR-ROCHE-2184375

PATIENT
  Age: 75 Year
  Sex: Female

DRUGS (2)
  1. RANIBIZUMAB. [Suspect]
     Active Substance: RANIBIZUMAB
     Indication: DIABETIC RETINOPATHY
     Dosage: THREE INJECTIONS IN THE NEXT CONSECUTIVE MONTHS IN OS FOLLOWED BY THREE INJECTIONS IN OD RESPECTIVEL
     Route: 050
  2. RANIBIZUMAB. [Suspect]
     Active Substance: RANIBIZUMAB
     Indication: DIABETIC RETINAL OEDEMA
     Route: 050

REACTIONS (4)
  - Macular oedema [Unknown]
  - Cytomegalovirus chorioretinitis [Recovering/Resolving]
  - Visual impairment [Recovering/Resolving]
  - Pericarditis [Unknown]
